FAERS Safety Report 6690657-7 (Version None)
Quarter: 2010Q2

REPORT INFORMATION
  Report Type: 
  Country: None (occurrence: None)
  Receive Date: 20100421
  Receipt Date: 20100329
  Transmission Date: 20101027
  Serious: No
  Sender: FDA-Public Use
  Company Number: US-JNJFOC-20100400747

PATIENT
  Sex: Female
  Weight: 104.33 kg

DRUGS (4)
  1. INVEGA SUSTENNA [Suspect]
     Indication: HALLUCINATION, AUDITORY
     Route: 030
  2. INVEGA SUSTENNA [Suspect]
     Route: 030
  3. INVEGA SUSTENNA [Suspect]
     Route: 030
  4. CELEXA [Concomitant]
     Indication: DEPRESSION
     Route: 048

REACTIONS (2)
  - FLAT AFFECT [None]
  - HALLUCINATION, AUDITORY [None]
